FAERS Safety Report 22770466 (Version 2)
Quarter: 2023Q4

REPORT INFORMATION
  Report Type: Spontaneous
  Country: US (occurrence: US)
  Receive Date: 20230801
  Receipt Date: 20231123
  Transmission Date: 20240110
  Serious: Yes (Hospitalization)
  Sender: FDA-Public Use
  Company Number: US-Plusultra pharma GmbH-NPA-2023-01462

PATIENT
  Sex: Female
  Weight: 60.2 kg

DRUGS (4)
  1. HYFTOR [Suspect]
     Active Substance: SIROLIMUS
     Indication: Tuberous sclerosis complex
     Dosage: APPLY 400 MG TOPICALLY DAILY
     Route: 061
     Dates: start: 20230317
  2. ABILIFY [Concomitant]
     Active Substance: ARIPIPRAZOLE
  3. ENALAPRIL [Concomitant]
     Active Substance: ENALAPRIL
  4. RISPERIDONE [Concomitant]
     Active Substance: RISPERIDONE

REACTIONS (1)
  - Intentional self-injury [Unknown]
